FAERS Safety Report 4819297-9 (Version None)
Quarter: 2005Q4

REPORT INFORMATION
  Report Type: 
  Country: None (occurrence: None)
  Receive Date: 20051103
  Receipt Date: 20050718
  Transmission Date: 20060501
  Serious: Yes (Other)
  Sender: FDA-Public Use
  Company Number: US-ROCHE-411290

PATIENT
  Age: 65 Year
  Sex: Female
  Weight: 83.9 kg

DRUGS (5)
  1. BONIVA [Suspect]
     Indication: DRUG USE FOR UNKNOWN INDICATION
     Route: 065
  2. PREVACID [Concomitant]
     Route: 048
  3. LIBRIUM [Concomitant]
     Indication: ANXIETY
     Route: 048
  4. EFFEXOR XR [Concomitant]
     Indication: DEPRESSION
     Route: 048
  5. UNCLASSIFIED DRUG [Concomitant]
     Indication: PAIN
     Dosage: DOSAGE REGIMEN: QHS. DRUG NAME REPORTED AS ^NEVRONTIN^.
     Route: 048
     Dates: start: 20050615

REACTIONS (5)
  - HYPOAESTHESIA ORAL [None]
  - INFLUENZA [None]
  - INFLUENZA LIKE ILLNESS [None]
  - NAUSEA [None]
  - PANIC ATTACK [None]
